FAERS Safety Report 10103256 (Version 1)
Quarter: 2014Q2

REPORT INFORMATION
  Report Type: Spontaneous
  Country: FR (occurrence: FR)
  Receive Date: 20140424
  Receipt Date: 20140424
  Transmission Date: 20141212
  Serious: Yes (Hospitalization)
  Sender: FDA-Public Use
  Company Number: FR-GLAXOSMITHKLINE-B0987150A

PATIENT
  Sex: Female
  Weight: 2.2 kg

DRUGS (7)
  1. LAMICTAL [Suspect]
     Indication: EPILEPSY
     Route: 064
     Dates: start: 20130625
  2. URBANYL [Suspect]
     Indication: EPILEPSY
     Route: 064
     Dates: start: 20130625
  3. ACTISKENAN [Suspect]
     Indication: PRODUCT USED FOR UNKNOWN INDICATION
     Route: 064
  4. SERESTA [Suspect]
     Indication: PRODUCT USED FOR UNKNOWN INDICATION
     Route: 064
  5. CODOLIPRANE [Suspect]
     Indication: PRODUCT USED FOR UNKNOWN INDICATION
     Route: 064
  6. IMOVANE [Suspect]
     Indication: PRODUCT USED FOR UNKNOWN INDICATION
     Route: 064
  7. DEPAKINE CHRONO [Suspect]
     Indication: EPILEPSY
     Dosage: 500MG THREE TIMES PER DAY
     Route: 064
     Dates: end: 20130617

REACTIONS (2)
  - Foetal growth restriction [Recovered/Resolved]
  - Foetal exposure during pregnancy [Unknown]
